FAERS Safety Report 20428482 (Version 2)
Quarter: 2022Q1

REPORT INFORMATION
  Report Type: Report from Study
  Country: FR (occurrence: FR)
  Receive Date: 20220204
  Receipt Date: 20220211
  Transmission Date: 20220423
  Serious: Yes (Death, Life-Threatening, Hospitalization, Other)
  Sender: FDA-Public Use
  Company Number: FR-BRISTOL-MYERS SQUIBB COMPANY-BMS-2022-011381

PATIENT
  Age: 68 Year
  Sex: Male

DRUGS (1)
  1. NIVOLUMAB [Suspect]
     Active Substance: NIVOLUMAB
     Indication: Head and neck cancer metastatic
     Dosage: UNK
     Route: 065

REACTIONS (5)
  - Death [Fatal]
  - Malaise [Unknown]
  - Pulmonary embolism [Unknown]
  - Arrhythmia [Unknown]
  - Fall [Unknown]

NARRATIVE: CASE EVENT DATE: 20220120
